FAERS Safety Report 4702683-5 (Version None)
Quarter: 2005Q2

REPORT INFORMATION
  Report Type: 
  Country: None (occurrence: None)
  Receive Date: 20050629
  Receipt Date: 20050203
  Transmission Date: 20051028
  Serious: No
  Sender: FDA-Public Use
  Company Number: 2005003216

PATIENT
  Age: 45 Year
  Sex: Female

DRUGS (2)
  1. ZYBAN [Suspect]
     Route: 048
     Dates: start: 20030101, end: 20030101
  2. NICODERM [Suspect]
     Dosage: 21MG PER DAY
     Route: 061
     Dates: start: 20030101, end: 20030101

REACTIONS (4)
  - DIZZINESS [None]
  - FATIGUE [None]
  - INSOMNIA [None]
  - PSYCHOMOTOR HYPERACTIVITY [None]
